FAERS Safety Report 4547543-8 (Version None)
Quarter: 2004Q4

REPORT INFORMATION
  Report Type: 
  Country: None (occurrence: None)
  Receive Date: 20041227
  Receipt Date: 20040923
  Transmission Date: 20050328
  Serious: No
  Sender: FDA-Public Use
  Company Number: 04P-163-0274363-00

PATIENT
  Age: 82 Year
  Sex: Male
  Weight: 107 kg

DRUGS (12)
  1. HUMIRA [Suspect]
     Indication: RHEUMATOID ARTHRITIS
     Dosage: 40 MG, 1 IN 2 WK, SUBCUTANEOUS
     Route: 058
     Dates: start: 20040506
  2. ALLOPURINOL [Concomitant]
  3. FOLIC ACID [Concomitant]
  4. FUROSEMIDE [Concomitant]
  5. GLIBENCLAMIDE [Concomitant]
  6. LEVOTHYROXINE SODIUM [Concomitant]
  7. LISINOPRIL [Concomitant]
  8. POTASSIUM CHLORIDE [Concomitant]
  9. ZOCOR [Concomitant]
  10. PREDNISONE [Concomitant]
  11. ACETYLSALICYLIC ACID SRT [Concomitant]
  12. METHOTREXATE [Concomitant]

REACTIONS (1)
  - MEDICATION ERROR [None]
